FAERS Safety Report 5084347-4 (Version None)
Quarter: 2006Q3

REPORT INFORMATION
  Report Type: 
  Country: None (occurrence: None)
  Receive Date: 20060816
  Receipt Date: 20060807
  Transmission Date: 20061208
  Serious: Yes (Death, Hospitalization)
  Sender: FDA-Public Use
  Company Number: 13446075

PATIENT
  Sex: Female

DRUGS (3)
  1. EMSAM [Suspect]
     Indication: DEPRESSION
     Dosage: 6 MILLIGRAM, 1/24 HOUR TD
     Dates: start: 20060101, end: 20060629
  2. AMBIEN [Concomitant]
  3. TEMAZEPAM [Concomitant]

REACTIONS (7)
  - APALLIC SYNDROME [None]
  - BRAIN OEDEMA [None]
  - CARDIAC ARREST [None]
  - CONVULSION [None]
  - FEELING ABNORMAL [None]
  - GAIT DISTURBANCE [None]
  - PANCREATITIS [None]
